FAERS Safety Report 9714721 (Version 2)
Quarter: 2014Q1

REPORT INFORMATION
  Report Type: Spontaneous
  Country: IT (occurrence: IT)
  Receive Date: 20131126
  Receipt Date: 20140121
  Transmission Date: 20141002
  Serious: Yes (Hospitalization)
  Sender: FDA-Public Use
  Company Number: IT-ABBVIE-13P-083-1173383-00

PATIENT
  Age: 26 Year
  Sex: Female

DRUGS (2)
  1. MACLADIN [Suspect]
     Indication: TOOTHACHE
     Route: 048
     Dates: start: 20131107, end: 20131107
  2. BRUFEN [Suspect]
     Indication: TOOTHACHE
     Route: 048
     Dates: start: 20131107, end: 20131107

REACTIONS (1)
  - Tongue oedema [Recovered/Resolved]
